FAERS Safety Report 6384390-9 (Version None)
Quarter: 2009Q4

REPORT INFORMATION
  Report Type: 
  Country: None (occurrence: None)
  Receive Date: 20091001
  Receipt Date: 20090923
  Transmission Date: 20100525
  Serious: Yes (Other)
  Sender: FDA-Public Use
  Company Number: CA-JNJFOC-20090907448

PATIENT
  Age: 47 Year
  Sex: Male

DRUGS (3)
  1. REMICADE [Suspect]
     Indication: COLITIS ULCERATIVE
     Route: 042
  2. LIPITOR [Concomitant]
     Indication: DIABETES MELLITUS
  3. ALL OTHER THERAPEUTIC DRUGS [Concomitant]
     Indication: DIABETES MELLITUS

REACTIONS (2)
  - BLOOD BILIRUBIN INCREASED [None]
  - LIVER FUNCTION TEST ABNORMAL [None]
